FAERS Safety Report 18125651 (Version 2)
Quarter: 2020Q4

REPORT INFORMATION
  Report Type: Spontaneous
  Country: US (occurrence: US)
  Receive Date: 20200807
  Receipt Date: 20201019
  Transmission Date: 20210113
  Serious: Yes (Hospitalization)
  Sender: FDA-Public Use
  Company Number: US-ALEXION-A202011364

PATIENT
  Sex: Female

DRUGS (1)
  1. SOLIRIS [Suspect]
     Active Substance: ECULIZUMAB
     Indication: MYASTHENIA GRAVIS
     Dosage: 1200 MG, Q2W
     Route: 042
     Dates: start: 20190524

REACTIONS (1)
  - Transfusion [Unknown]
